FAERS Safety Report 20840162 (Version 6)
Quarter: 2023Q1

REPORT INFORMATION
  Report Type: Report from Study
  Country: MA (occurrence: MA)
  Receive Date: 20220517
  Receipt Date: 20230318
  Transmission Date: 20230417
  Serious: Yes (Other)
  Sender: FDA-Public Use
  Company Number: MA-NOVARTISPH-NVSC2022MA109710

PATIENT
  Sex: Female

DRUGS (9)
  1. COSENTYX [Suspect]
     Active Substance: SECUKINUMAB
     Indication: Psoriatic arthropathy
     Dosage: 300 MG, 4 INJECTIONS IN A MONTH
     Route: 058
  2. COSENTYX [Suspect]
     Active Substance: SECUKINUMAB
     Dosage: 150 MG, QMO
     Route: 058
  3. OXYPHENONIUM BROMIDE [Suspect]
     Active Substance: OXYPHENONIUM BROMIDE
     Indication: Product used for unknown indication
     Dosage: 1 DOSAGE FORM, BID (TWICE PER DAY IN MORNINGS)
     Route: 065
  4. PREDNISONE [Concomitant]
     Active Substance: PREDNISONE
     Indication: Product used for unknown indication
     Dosage: UNK (7.5 OT)
     Route: 065
  5. DIFAL [Concomitant]
     Indication: Product used for unknown indication
     Dosage: UNK
     Route: 065
  6. ALPRAZOLAM [Concomitant]
     Active Substance: ALPRAZOLAM
     Indication: Abdominal discomfort
     Dosage: UNK
     Route: 065
  7. OSTEOCARE [Concomitant]
     Active Substance: CALCIUM\CHOLECALCIFEROL\MAGNESIUM\ZINC
     Indication: Antiinflammatory therapy
     Dosage: UNK
     Route: 065
  8. AMITRIPTYLINE HYDROCHLORIDE [Concomitant]
     Active Substance: AMITRIPTYLINE HYDROCHLORIDE
     Indication: Somnolence
     Dosage: UNK
     Route: 065
  9. ZEPAM [Concomitant]
     Indication: Somnolence
     Route: 065

REACTIONS (17)
  - Fatigue [Recovering/Resolving]
  - Spondyloarthropathy [Unknown]
  - Gait inability [Unknown]
  - Mobility decreased [Unknown]
  - Fear [Unknown]
  - Stress [Recovering/Resolving]
  - Chills [Unknown]
  - Gastrointestinal pain [Unknown]
  - Diarrhoea [Not Recovered/Not Resolved]
  - Pain [Unknown]
  - Swelling face [Unknown]
  - Memory impairment [Unknown]
  - Gait disturbance [Unknown]
  - Arthralgia [Unknown]
  - Musculoskeletal discomfort [Unknown]
  - Joint noise [Unknown]
  - Drug ineffective [Unknown]
